FAERS Safety Report 9265418 (Version 2)
Quarter: 2013Q3

REPORT INFORMATION
  Report Type: Report from Study
  Country: DE (occurrence: DE)
  Receive Date: 20130501
  Receipt Date: 20130918
  Transmission Date: 20140515
  Serious: Yes (Hospitalization)
  Sender: FDA-Public Use
  Company Number: DE-TEVA-361987GER

PATIENT
  Sex: Female

DRUGS (1)
  1. COPAXONE [Suspect]
     Indication: MULTIPLE SCLEROSIS
     Dosage: 20 MILLIGRAM DAILY;
     Route: 058
     Dates: start: 20061101

REACTIONS (1)
  - Lumbar spinal stenosis [Not Recovered/Not Resolved]
